FAERS Safety Report 18630029 (Version 3)
Quarter: 2020Q4

REPORT INFORMATION
  Report Type: Spontaneous
  Country: DE (occurrence: DE)
  Receive Date: 20201217
  Receipt Date: 20201228
  Transmission Date: 20210114
  Serious: Yes (Other)
  Sender: FDA-Public Use
  Company Number: DE-BAYER-2020-280906

PATIENT
  Age: 45 Year
  Sex: Female

DRUGS (1)
  1. MIRENA [Suspect]
     Active Substance: LEVONORGESTREL
     Dosage: 20 ?G PER DAY CONTINUOUSLY FOR MANY YEARS
     Route: 015
     Dates: start: 2017

REACTIONS (2)
  - Contraindicated product administered [None]
  - Breast cancer female [None]

NARRATIVE: CASE EVENT DATE: 202012
